FAERS Safety Report 5200216-0 (Version None)
Quarter: 2007Q1

REPORT INFORMATION
  Report Type: 
  Country: None (occurrence: None)
  Receive Date: 20070103
  Receipt Date: 20061218
  Transmission Date: 20070707
  Serious: Yes (Death)
  Sender: FDA-Public Use
  Company Number: GXKR2006US08283

PATIENT
  Age: 29 Year
  Sex: Male

DRUGS (7)
  1. FENTANYL [Suspect]
  2. METHADONE HCL [Suspect]
  3. DEXTROPROPOXYPHENE (NGX) (DEXTROPROPOXPHENE) [Suspect]
  4. MIRTAZAPINE [Suspect]
  5. DIAZEPAM [Suspect]
  6. AMITRIPTYLINE HCL [Suspect]
  7. SERTRALINE [Suspect]

REACTIONS (1)
  - DRUG TOXICITY [None]
